FAERS Safety Report 15204597 (Version 1)
Quarter: 2018Q3

REPORT INFORMATION
  Report Type: Spontaneous
  Country: US (occurrence: US)
  Receive Date: 20180628
  Receipt Date: 20180628
  Transmission Date: 20181010
  Serious: Yes (Other)
  Sender: FDA-Public Use
  Company Number: None

PATIENT
  Age: 63 Year
  Sex: Female

DRUGS (6)
  1. OXYCODONE 15MG [Concomitant]
     Active Substance: OXYCODONE
  2. PROGESTERONE 100MG [Concomitant]
     Active Substance: PROGESTERONE
  3. LEVOTHYROXINE 150MG [Concomitant]
  4. VITAMIN D3 5000U [Concomitant]
  5. MODAFINIL. [Suspect]
     Active Substance: MODAFINIL
     Indication: PRODUCT USED FOR UNKNOWN INDICATION
     Dosage: ?          OTHER FREQUENCY:1 AM, 1/2 PM;?
     Route: 048
     Dates: start: 20180130, end: 20180429
  6. ESTRADIOL 1MG [Concomitant]

REACTIONS (6)
  - Product substitution issue [None]
  - Diplopia [None]
  - Feeling cold [None]
  - Sedation [None]
  - Dizziness [None]
  - Frequent bowel movements [None]

NARRATIVE: CASE EVENT DATE: 20180130
